FAERS Safety Report 8560352-8 (Version None)
Quarter: 2012Q3

REPORT INFORMATION
  Report Type: 
  Country: None (occurrence: None)
  Receive Date: 20120802
  Receipt Date: 20120725
  Transmission Date: 20120928
  Serious: Yes (Other)
  Sender: FDA-Public Use
  Company Number: JP-VERTEX PHARMACEUTICALS INC.-AE-2012-011112

PATIENT
  Age: 46 Year
  Sex: Male

DRUGS (19)
  1. PROHEPARUM [Concomitant]
     Route: 048
  2. PREDNISOLONE [Concomitant]
     Route: 048
     Dates: start: 20120618
  3. FLUNITRAZEPAM [Concomitant]
     Route: 048
  4. SELBEX [Concomitant]
     Route: 048
  5. PEGINTERFERON ALFA-2B [Concomitant]
     Indication: HEPATITIS C
     Route: 058
     Dates: start: 20120523, end: 20120627
  6. ALLOPURINOL [Concomitant]
     Route: 048
     Dates: start: 20120613, end: 20120702
  7. PREDNISOLONE [Concomitant]
     Route: 048
     Dates: start: 20120627, end: 20120704
  8. VEGETAMIN B [Concomitant]
     Route: 048
  9. VOLTAREN [Concomitant]
     Route: 048
  10. EPINASTINE HYDROCHLORIDE [Concomitant]
     Indication: PROPHYLAXIS
     Route: 048
     Dates: start: 20120523
  11. TELAVIC (TELAPREVIR) [Suspect]
     Route: 048
     Dates: start: 20120528, end: 20120702
  12. RIBAVIRIN [Concomitant]
     Indication: HEPATITIS C
     Route: 048
     Dates: start: 20120523, end: 20120612
  13. RIBAVIRIN [Concomitant]
     Route: 048
     Dates: start: 20120613, end: 20120702
  14. FOLIC ACID [Concomitant]
     Route: 048
  15. TELAVIC (TELAPREVIR) [Suspect]
     Indication: HEPATITIS C
     Route: 048
     Dates: start: 20120523, end: 20120525
  16. PREDNISOLONE [Concomitant]
     Route: 048
     Dates: start: 20120613
  17. VITAMEDIN [Concomitant]
     Route: 048
  18. PREDNISOLONE [Concomitant]
     Route: 048
     Dates: start: 20120620
  19. MIYA BM [Concomitant]
     Route: 048

REACTIONS (2)
  - PANCREATITIS ACUTE [None]
  - ERYTHEMA [None]
